FAERS Safety Report 9407905 (Version 2)
Quarter: 2013Q3

REPORT INFORMATION
  Report Type: Spontaneous
  Country: JP (occurrence: JP)
  Receive Date: 20130718
  Receipt Date: 20130724
  Transmission Date: 20140515
  Serious: Yes (Other)
  Sender: FDA-Public Use
  Company Number: JP-009507513-1307JPN003456

PATIENT
  Age: 57 Year
  Sex: Female
  Weight: 52 kg

DRUGS (6)
  1. PEGINTRON [Suspect]
     Indication: CHRONIC HEPATITIS C
     Dosage: 80 MICROGRAM PER KILOGRAM, QW
     Route: 058
     Dates: start: 20130515, end: 20130619
  2. REBETOL [Suspect]
     Indication: CHRONIC HEPATITIS C
     Dosage: 400 MG, QD
     Route: 048
     Dates: start: 20130515, end: 20130623
  3. TELAVIC [Suspect]
     Indication: CHRONIC HEPATITIS C
     Dosage: 2250 MG, QD
     Route: 048
     Dates: start: 20130515, end: 20130623
  4. CALONAL [Concomitant]
     Indication: PROPHYLAXIS
     Dosage: 1200MG, QD, FORMULATION: POR
     Route: 048
     Dates: start: 20130515, end: 20130623
  5. MUCOSTA [Concomitant]
     Indication: PROPHYLAXIS
     Dosage: 300 MG, QD, FORMULATION: POR
     Route: 048
     Dates: start: 20130515, end: 20130623
  6. PRIMPERAN [Concomitant]
     Indication: PROPHYLAXIS
     Dosage: 5 MG, QD
     Route: 048
     Dates: start: 20130515, end: 20130623

REACTIONS (1)
  - Drug eruption [Recovering/Resolving]
